FAERS Safety Report 4431210-5 (Version None)
Quarter: 2004Q3

REPORT INFORMATION
  Report Type: 
  Country: None (occurrence: None)
  Receive Date: 20040823
  Receipt Date: 20040823
  Transmission Date: 20050211
  Serious: Yes (Life-Threatening)
  Sender: FDA-Public Use
  Company Number: None

PATIENT
  Age: 52 Year
  Sex: Female
  Weight: 74.8435 kg

DRUGS (1)
  1. NEURONTIN [Suspect]
     Indication: JOINT SPRAIN
     Dosage: 1/PER 12 HRS

REACTIONS (8)
  - ASTHENIA [None]
  - COORDINATION ABNORMAL [None]
  - DIZZINESS [None]
  - DRY MOUTH [None]
  - SOMNOLENCE [None]
  - SPEECH DISORDER [None]
  - TRISMUS [None]
  - VISION BLURRED [None]
